FAERS Safety Report 5377521-0 (Version None)
Quarter: 2007Q3

REPORT INFORMATION
  Report Type: 
  Country: None (occurrence: None)
  Receive Date: 20070703
  Receipt Date: 20070621
  Transmission Date: 20080115
  Serious: Yes (Other)
  Sender: FDA-Public Use
  Company Number: FR-AMGEN-UK230786

PATIENT
  Age: 40 Year
  Sex: Male

DRUGS (6)
  1. MIMPARA [Suspect]
     Indication: DRUG USE FOR UNKNOWN INDICATION
     Route: 065
  2. RENAGEL [Concomitant]
     Route: 065
  3. ALLOPURINOL [Concomitant]
     Route: 065
  4. CALCIUM CHLORIDE [Concomitant]
     Route: 065
  5. ARANESP [Concomitant]
     Route: 065
  6. ATACAND [Concomitant]
     Route: 065

REACTIONS (1)
  - PARAESTHESIA [None]
